FAERS Safety Report 8077623-4 (Version None)
Quarter: 2012Q1

REPORT INFORMATION
  Report Type: 
  Country: None (occurrence: None)
  Receive Date: 20120127
  Receipt Date: 20120117
  Transmission Date: 20120608
  Serious: Yes (Other)
  Sender: FDA-Public Use
  Company Number: JP-ASTRAZENECA-2012SE04732

PATIENT
  Age: 96 Year
  Sex: Female

DRUGS (1)
  1. MEROPENEM [Suspect]
     Route: 042
     Dates: end: 20120106

REACTIONS (1)
  - HEPATIC FUNCTION ABNORMAL [None]
